FAERS Safety Report 25113936 (Version 1)
Quarter: 2025Q1

REPORT INFORMATION
  Report Type: Report from Study
  Country: CN (occurrence: CN)
  Receive Date: 20250324
  Receipt Date: 20250324
  Transmission Date: 20250408
  Serious: Yes (Hospitalization)
  Sender: MERCK SHARP & DOHME LLC
  Company Number: CN-AstraZeneca-2023A267875

PATIENT
  Age: 66 Year
  Sex: Female
  Weight: 53 kg

DRUGS (17)
  1. PEMBROLIZUMAB [Suspect]
     Active Substance: PEMBROLIZUMAB
     Indication: Non-small cell lung cancer
     Route: 065
     Dates: start: 20231103, end: 20231129
  2. APREPITANT [Concomitant]
     Active Substance: APREPITANT
     Indication: Product used for unknown indication
     Dosage: 125 MG, QD
     Route: 065
     Dates: start: 20231103, end: 20231103
  3. APREPITANT [Concomitant]
     Active Substance: APREPITANT
     Indication: Product used for unknown indication
     Dosage: 80 MG, QD
     Route: 065
     Dates: start: 20231104, end: 20231105
  4. METHYLCOBALAMIN [Concomitant]
     Active Substance: METHYLCOBALAMIN
     Indication: Product used for unknown indication
     Dosage: 1 MG, QD
     Route: 065
     Dates: start: 20231103, end: 20231103
  5. PEMETREXED DIARGININE [Suspect]
     Active Substance: PEMETREXED DIARGININE
     Indication: Non-small cell lung cancer
     Route: 065
     Dates: start: 20231103, end: 20231129
  6. TROPISETRON HYDROCHLORIDE [Concomitant]
     Active Substance: TROPISETRON HYDROCHLORIDE
     Indication: Product used for unknown indication
     Dosage: 5 MG, QD
     Route: 065
     Dates: start: 20231103, end: 20231104
  7. COMPOUND GLYCYRRHIZIN [CYSTEINE HYDROCHLORIDE;GLYCINE;GLYCYRRHIZIC ... [Concomitant]
     Indication: Product used for unknown indication
     Dosage: 100 ML, QD
     Route: 065
     Dates: start: 20231103, end: 20231104
  8. MAI LING DA [Concomitant]
     Indication: Product used for unknown indication
     Route: 065
     Dates: start: 20231123
  9. LEUCOGEN [ASPARAGINASE] [Concomitant]
     Indication: Product used for unknown indication
     Dosage: 20 MG, ONCE EVERY 8HR
     Route: 065
     Dates: start: 20231104
  10. UNSPECIFIED INGREDIENT [Concomitant]
     Active Substance: UNSPECIFIED INGREDIENT
     Indication: Product used for unknown indication
     Route: 065
     Dates: start: 20231102
  11. FUROSEMIDE SODIUM [Concomitant]
     Active Substance: FUROSEMIDE SODIUM
     Indication: Product used for unknown indication
     Dosage: 40 MG, QD
     Route: 065
     Dates: start: 20231103, end: 20231104
  12. METOCLOPRAMIDE HYDROCHLORIDE [Concomitant]
     Active Substance: METOCLOPRAMIDE HYDROCHLORIDE
     Indication: Product used for unknown indication
     Dosage: 10 MG, QD
     Route: 065
     Dates: start: 20231103, end: 20231104
  13. INVERT SUGAR [Concomitant]
     Active Substance: INVERT SUGAR
     Indication: Product used for unknown indication
     Dosage: 10 MG, QD
     Route: 065
     Dates: start: 20231103, end: 20231104
  14. OMEPRAZOLE SODIUM [Concomitant]
     Active Substance: OMEPRAZOLE SODIUM
     Indication: Product used for unknown indication
     Dosage: 40 MG, QD
     Route: 065
     Dates: start: 20231103, end: 20231103
  15. DEXAMETHASONE SODIUM PHOSPHATE [Concomitant]
     Active Substance: DEXAMETHASONE SODIUM PHOSPHATE
     Indication: Product used for unknown indication
     Dosage: 3.75 MG, ONCE EVERY 12HR
     Route: 065
     Dates: start: 20231102, end: 20231103
  16. VITAMIN B6 [Concomitant]
     Active Substance: PYRIDOXINE HYDROCHLORIDE
     Indication: Product used for unknown indication
     Dosage: 100 MG, QD
     Route: 065
     Dates: start: 20231103, end: 20231103
  17. CARBOPLATIN [Suspect]
     Active Substance: CARBOPLATIN
     Indication: Non-small cell lung cancer
     Route: 065
     Dates: start: 20231103, end: 20231129

REACTIONS (1)
  - Pelvic venous thrombosis [Recovering/Resolving]

NARRATIVE: CASE EVENT DATE: 20231123
